FAERS Safety Report 6818728-2 (Version None)
Quarter: 2010Q3

REPORT INFORMATION
  Report Type: 
  Country: None (occurrence: None)
  Receive Date: 20100706
  Receipt Date: 20100701
  Transmission Date: 20110219
  Serious: Yes (Hospitalization)
  Sender: FDA-Public Use
  Company Number: US-GILEAD-2010-0030170

PATIENT
  Sex: Female
  Weight: 97.61 kg

DRUGS (11)
  1. LETAIRIS [Suspect]
     Indication: PULMONARY ARTERIAL HYPERTENSION
     Route: 048
     Dates: start: 20071030
  2. METOPROLOL TARTRATE [Concomitant]
  3. ADVAIR DISKUS 100/50 [Concomitant]
  4. GLIPIZIDE [Concomitant]
  5. PLAQUENIL [Concomitant]
  6. PREDNISONE [Concomitant]
  7. PROTONIX [Concomitant]
  8. PROGRAF [Concomitant]
  9. RENAGEL [Concomitant]
  10. SENSIPAR [Concomitant]
  11. VALCYTE [Concomitant]

REACTIONS (3)
  - ATRIAL FIBRILLATION [None]
  - DIZZINESS [None]
  - UNEVALUABLE EVENT [None]
